FAERS Safety Report 15854014 (Version 3)
Quarter: 2019Q3

REPORT INFORMATION
  Report Type: Spontaneous
  Country: US (occurrence: US)
  Receive Date: 20190122
  Receipt Date: 20190705
  Transmission Date: 20191004
  Serious: No
  Sender: FDA-Public Use
  Company Number: US-PFIZER INC-2019023519

PATIENT
  Sex: Female
  Weight: 61.69 kg

DRUGS (1)
  1. PHENYTOIN SODIUM. [Suspect]
     Active Substance: PHENYTOIN SODIUM
     Dosage: 100 MG, 1X/DAY (EVERY MORNING)
     Route: 048

REACTIONS (1)
  - Therapeutic product effect incomplete [Unknown]
